FAERS Safety Report 6508489-9 (Version None)
Quarter: 2009Q4

REPORT INFORMATION
  Report Type: 
  Country: None (occurrence: None)
  Receive Date: 20091221
  Receipt Date: 20081112
  Transmission Date: 20100525
  Serious: No
  Sender: FDA-Public Use
  Company Number: US-ASTRAZENECA-2008UW25317

PATIENT
  Age: 78 Year
  Sex: Female
  Weight: 65.8 kg

DRUGS (2)
  1. CRESTOR [Suspect]
     Indication: HYPERCHOLESTEROLAEMIA
     Route: 048
     Dates: start: 20080501
  2. VITAMINS [Concomitant]

REACTIONS (3)
  - HYPERSENSITIVITY [None]
  - INSOMNIA [None]
  - RASH PRURITIC [None]
